FAERS Safety Report 5177492-6 (Version None)
Quarter: 2006Q4

REPORT INFORMATION
  Report Type: 
  Country: None (occurrence: None)
  Receive Date: 20061218
  Receipt Date: 20060928
  Transmission Date: 20070319
  Serious: Yes (Hospitalization)
  Sender: FDA-Public Use
  Company Number: FR-ELI_LILLY_AND_COMPANY-FR200609006902

PATIENT
  Age: 59 Year
  Sex: Female
  Weight: 38.5 kg

DRUGS (8)
  1. PERINDOPRIL ERBUMINE [Concomitant]
     Indication: HYPERTENSION
     Dosage: 4 MG, DAILY (1/D)
     Route: 048
  2. PLAVIX                                  /UNK/ [Concomitant]
     Indication: PROPHYLAXIS
     Dosage: 2 D/F, WEEKLY (1/W)
     Route: 048
  3. OROCAL VITAMIN D [Concomitant]
     Indication: OSTEOPOROSIS
     Dosage: 2 D/F, DAILY (1/D)
     Route: 048
  4. SPASFON [Concomitant]
     Indication: ABDOMINAL PAIN
     Dosage: 6 D/F, DAILY (1/D)
     Route: 048
  5. OMEPRAZOLE [Concomitant]
     Indication: PROPHYLAXIS
     Dosage: 20 MG, DAILY (1/D)
     Route: 048
  6. TOPALGIC [Concomitant]
     Indication: BONE PAIN
     Dosage: 200 MG, DAILY (1/D)
     Route: 048
  7. LEXOMIL [Concomitant]
     Indication: SLEEP DISORDER
     Dosage: 1 D/F, DAILY (1/D)
     Route: 048
  8. FORTEO [Suspect]
     Indication: OSTEOPOROSIS
     Dosage: 20 UG, DAILY (1/D)
     Route: 058
     Dates: start: 20060623, end: 20060925

REACTIONS (2)
  - ACUTE CORONARY SYNDROME [None]
  - ACUTE PULMONARY OEDEMA [None]
